FAERS Safety Report 4860488-9 (Version None)
Quarter: 2005Q4

REPORT INFORMATION
  Report Type: 
  Country: None (occurrence: None)
  Receive Date: 20051219
  Receipt Date: 20051206
  Transmission Date: 20060501
  Serious: Yes (Hospitalization)
  Sender: FDA-Public Use
  Company Number: JP-NOVOPROD-249122

PATIENT
  Age: 5 Year
  Sex: Male
  Weight: 13 kg

DRUGS (1)
  1. NORDITROPIN SIMPLEXX [Suspect]
     Indication: SMALL FOR DATES BABY
     Dosage: .067 MG/KG, QD
     Route: 058
     Dates: start: 20041104

REACTIONS (2)
  - ADENOIDAL DISORDER [None]
  - TONSILLAR HYPERTROPHY [None]
